FAERS Safety Report 16583875 (Version 1)
Quarter: 2019Q3

REPORT INFORMATION
  Report Type: Spontaneous
  Country: US (occurrence: US)
  Receive Date: 20190716
  Receipt Date: 20190716
  Transmission Date: 20191004
  Serious: No
  Sender: FDA-Public Use
  Company Number: None

PATIENT
  Age: 49 Year
  Sex: Female
  Weight: 101.25 kg

DRUGS (14)
  1. CODEINE, TYLENOL CODEINE [Suspect]
     Active Substance: ACETAMINOPHEN\CODEINE PHOSPHATE
     Indication: RESTLESS LEGS SYNDROME
     Dosage: ?          QUANTITY:2 TABLET(S);?
     Route: 048
     Dates: start: 20190520, end: 20190713
  2. METAPROLOL [Concomitant]
     Active Substance: METOPROLOL
  3. TYLENOL-HYDROCODONE [Concomitant]
  4. CODEINE, TYLENOL CODEINE [Suspect]
     Active Substance: ACETAMINOPHEN\CODEINE PHOSPHATE
     Indication: BACK PAIN
     Dosage: ?          QUANTITY:2 TABLET(S);?
     Route: 048
     Dates: start: 20190520, end: 20190713
  5. DOXEPIN [Concomitant]
     Active Substance: DOXEPIN
  6. AIR INHALER [Concomitant]
  7. PROTONICS [Concomitant]
  8. MIRAPEX (GENERIC) PRAMIPEXOLE [Suspect]
     Active Substance: PRAMIPEXOLE DIHYDROCHLORIDE
     Indication: RESTLESS LEGS SYNDROME
     Dosage: ?          QUANTITY:2 TABLET(S);?
     Route: 048
     Dates: start: 20190712, end: 20190716
  9. BENDRYL [Concomitant]
  10. TEGRETOL [Concomitant]
     Active Substance: CARBAMAZEPINE
  11. ADDERALL [Concomitant]
     Active Substance: AMPHETAMINE ASPARTATE\AMPHETAMINE SULFATE\DEXTROAMPHETAMINE SACCHARATE\DEXTROAMPHETAMINE SULFATE
  12. IRON W/VIT C [Concomitant]
  13. FLUID PILL [Concomitant]
  14. PHENGRAN [Concomitant]

REACTIONS (4)
  - Presyncope [None]
  - Dizziness [None]
  - Vomiting [None]
  - Nausea [None]

NARRATIVE: CASE EVENT DATE: 20190713
